FAERS Safety Report 22035883 (Version 3)
Quarter: 2025Q3

REPORT INFORMATION
  Report Type: Spontaneous
  Country: JP (occurrence: JP)
  Receive Date: 20230224
  Receipt Date: 20250830
  Transmission Date: 20251020
  Serious: Yes (Other)
  Sender: TAKEDA
  Company Number: JP-OTSUKA-2023_004652

PATIENT
  Age: 39 Year
  Sex: Male

DRUGS (13)
  1. ICLUSIG [Suspect]
     Active Substance: PONATINIB HYDROCHLORIDE
     Indication: Philadelphia positive acute lymphocytic leukaemia
  2. ICLUSIG [Suspect]
     Active Substance: PONATINIB HYDROCHLORIDE
  3. ICLUSIG [Suspect]
     Active Substance: PONATINIB HYDROCHLORIDE
  4. BLINATUMOMAB [Concomitant]
     Active Substance: BLINATUMOMAB
     Indication: Philadelphia positive acute lymphocytic leukaemia
  5. BLINATUMOMAB [Concomitant]
     Active Substance: BLINATUMOMAB
  6. INOTUZUMAB OZOGAMICIN [Concomitant]
     Active Substance: INOTUZUMAB OZOGAMICIN
     Indication: Philadelphia positive acute lymphocytic leukaemia
  7. INOTUZUMAB OZOGAMICIN [Concomitant]
     Active Substance: INOTUZUMAB OZOGAMICIN
  8. METHOTREXATE [Concomitant]
     Active Substance: METHOTREXATE
     Indication: Philadelphia positive acute lymphocytic leukaemia
  9. METHOTREXATE [Concomitant]
     Active Substance: METHOTREXATE
  10. CYTARABINE [Concomitant]
     Active Substance: CYTARABINE
     Indication: Philadelphia positive acute lymphocytic leukaemia
  11. CYTARABINE [Concomitant]
     Active Substance: CYTARABINE
  12. PREDNISOLONE ACETATE [Concomitant]
     Active Substance: PREDNISOLONE ACETATE
     Indication: Philadelphia positive acute lymphocytic leukaemia
  13. PREDNISOLONE ACETATE [Concomitant]
     Active Substance: PREDNISOLONE ACETATE

REACTIONS (1)
  - Myelosuppression [Recovered/Resolved]

NARRATIVE: CASE EVENT DATE: 20210501
